FAERS Safety Report 9801418 (Version 1)
Quarter: 2014Q1

REPORT INFORMATION
  Report Type: Spontaneous
  Country: US (occurrence: US)
  Receive Date: 20140107
  Receipt Date: 20140107
  Transmission Date: 20141002
  Serious: Yes (Death)
  Sender: FDA-Public Use
  Company Number: US-PFIZER INC-2014003263

PATIENT
  Age: 31 Year
  Sex: Female

DRUGS (3)
  1. MORPHINE SULFATE [Suspect]
  2. OXYCODONE HYDROCHLORIDE [Suspect]
  3. ALPRAZOLAM [Suspect]

REACTIONS (3)
  - Overdose [Fatal]
  - Drug abuse [Fatal]
  - Brain herniation [Fatal]
